FAERS Safety Report 4736550-8 (Version None)
Quarter: 2005Q3

REPORT INFORMATION
  Report Type: 
  Country: None (occurrence: None)
  Receive Date: 20050805
  Receipt Date: 20050805
  Transmission Date: 20060218
  Serious: Yes (Hospitalization, Disabling)
  Sender: FDA-Public Use
  Company Number: None

PATIENT
  Age: 25 Year
  Sex: Female
  Weight: 63.5036 kg

DRUGS (3)
  1. BUPIVACAINE [Suspect]
     Indication: MYALGIA
     Dosage: 6CC INTRAVENOUS
     Route: 042
     Dates: start: 20050408, end: 20050414
  2. BUPIVACAINE [Suspect]
     Indication: TENSION HEADACHE
     Dosage: 6CC INTRAVENOUS
     Route: 042
     Dates: start: 20050408, end: 20050414
  3. LIDOCAINE 1% [Suspect]
     Dosage: 4CC INTRAMUSCULAR
     Route: 030
     Dates: start: 20050408, end: 20050414

REACTIONS (2)
  - DYSTONIA [None]
  - MUSCLE SPASTICITY [None]
